FAERS Safety Report 5060229-9 (Version None)
Quarter: 2006Q3

REPORT INFORMATION
  Report Type: 
  Country: None (occurrence: None)
  Receive Date: 20060724
  Receipt Date: 20060127
  Transmission Date: 20061208
  Serious: Yes (Hospitalization)
  Sender: FDA-Public Use
  Company Number: FR-MERCK-0601FRA00100

PATIENT
  Age: 74 Year
  Sex: Female

DRUGS (5)
  1. FOSAMAX [Suspect]
     Indication: OSTEOPOROSIS
     Route: 048
     Dates: start: 20050201, end: 20050503
  2. ASPIRIN LYSINE [Concomitant]
     Route: 048
     Dates: start: 20030101, end: 20050503
  3. ATORVASTATIN CALCIUM [Concomitant]
     Route: 048
     Dates: end: 20050503
  4. CALCIUM CARBONATE AND CHOLECALCIFEROL [Concomitant]
     Route: 048
     Dates: start: 20050201, end: 20050503
  5. VINBURNINE [Concomitant]
     Route: 048
     Dates: start: 19990101, end: 20050503

REACTIONS (4)
  - DRUG ERUPTION [None]
  - ERYTHEMA MULTIFORME [None]
  - PRURITUS [None]
  - PURPURA [None]
